FAERS Safety Report 14579177 (Version 1)
Quarter: 2018Q1

REPORT INFORMATION
  Report Type: Spontaneous
  Country: US (occurrence: US)
  Receive Date: 20180227
  Receipt Date: 20180227
  Transmission Date: 20180509
  Serious: Yes (Life-Threatening, Disabling, Other)
  Sender: FDA-Public Use
  Company Number: US-SA-2018SA024972

PATIENT
  Age: 57 Year
  Sex: Female
  Weight: 97.5 kg

DRUGS (10)
  1. METHOTREXATE. [Suspect]
     Active Substance: METHOTREXATE
     Route: 065
  2. LEVOTHROID [Suspect]
     Active Substance: LEVOTHYROXINE SODIUM
     Indication: HYPOTHYROIDISM
     Route: 065
  3. ENBREL [Suspect]
     Active Substance: ETANERCEPT
     Route: 065
  4. MORPHINE [Suspect]
     Active Substance: MORPHINE
     Indication: PAIN
     Route: 048
  5. TYLENOL [Suspect]
     Active Substance: ACETAMINOPHEN
     Indication: PAIN
     Route: 065
  6. ARMOUR THYROID [Suspect]
     Active Substance: THYROID, PORCINE
     Indication: HYPOTHYROIDISM
     Route: 048
  7. ARAVA [Suspect]
     Active Substance: LEFLUNOMIDE
     Indication: BLOOD PRESSURE MEASUREMENT
     Route: 048
     Dates: end: 201710
  8. SYNTHROID [Suspect]
     Active Substance: LEVOTHYROXINE SODIUM
     Route: 065
  9. HYDROCODONE [Suspect]
     Active Substance: HYDROCODONE
     Indication: PAIN
     Route: 065
  10. LIOTHYRONINE [Concomitant]
     Active Substance: LIOTHYRONINE

REACTIONS (18)
  - Nail growth abnormal [Unknown]
  - Blood pressure increased [Recovering/Resolving]
  - Skin ulcer [Unknown]
  - Blood potassium decreased [Unknown]
  - Pruritus [Unknown]
  - Blood sodium decreased [Unknown]
  - Skin haemorrhage [Unknown]
  - Musculoskeletal pain [Unknown]
  - Drug effect decreased [Unknown]
  - Scar [Unknown]
  - Weight decreased [Unknown]
  - Pain in extremity [Unknown]
  - Fibromyalgia [Not Recovered/Not Resolved]
  - Vascular injury [Unknown]
  - Arthralgia [Unknown]
  - Bone cyst [Not Recovered/Not Resolved]
  - Oedema peripheral [Unknown]
  - Pain [Unknown]

NARRATIVE: CASE EVENT DATE: 1995
